FAERS Safety Report 10183509 (Version 1)
Quarter: 2014Q2

REPORT INFORMATION
  Report Type: Spontaneous
  Country: US (occurrence: None)
  Receive Date: 20140416
  Receipt Date: 20140416
  Transmission Date: 20141212
  Serious: Yes (Other)
  Sender: FDA-Public Use
  Company Number: 163-POMAL-13120165

PATIENT
  Age: 63 Year
  Sex: Female

DRUGS (1)
  1. POMALYST (POMALIDOMIDE) (2 MILLIGRAM, CAPSULES) [Suspect]
     Indication: PLASMA CELL MYELOMA
     Route: 048
     Dates: start: 201311

REACTIONS (4)
  - Platelet count decreased [None]
  - Haemoglobin decreased [None]
  - White blood cell count decreased [None]
  - Red blood cell count decreased [None]
